FAERS Safety Report 5134826-6 (Version None)
Quarter: 2006Q4

REPORT INFORMATION
  Report Type: 
  Country: None (occurrence: None)
  Receive Date: 20061019
  Receipt Date: 20061011
  Transmission Date: 20070319
  Serious: Yes (Other)
  Sender: FDA-Public Use
  Company Number: US-2006-029048

PATIENT
  Age: 22 Year
  Sex: Female
  Weight: 55 kg

DRUGS (3)
  1. MAGNEVIST [Suspect]
     Indication: NUCLEAR MAGNETIC RESONANCE IMAGING
     Dosage: 11 ML, 1 DOSE, INTRAVENOUS
     Route: 042
     Dates: start: 20060928, end: 20060928
  2. VALPROATE SODIUM [Concomitant]
  3. TOPAMAX [Concomitant]

REACTIONS (4)
  - ANAPHYLACTOID REACTION [None]
  - BLOOD PRESSURE DIASTOLIC INCREASED [None]
  - CONFUSIONAL STATE [None]
  - DISORIENTATION [None]
